FAERS Safety Report 20712631 (Version 1)
Quarter: 2022Q2

REPORT INFORMATION
  Report Type: Spontaneous
  Country: CA (occurrence: CA)
  Receive Date: 20220415
  Receipt Date: 20220415
  Transmission Date: 20220721
  Serious: Yes (Hospitalization, Other)
  Sender: FDA-Public Use
  Company Number: CA-GLAXOSMITHKLINE-CACH2022AMR013796

PATIENT
  Age: 30 Year
  Sex: Male

DRUGS (1)
  1. IBUPROFEN [Suspect]
     Active Substance: IBUPROFEN
     Indication: Product used for unknown indication
     Dosage: 1 DF, QD
     Route: 065

REACTIONS (11)
  - Abdominal pain upper [Unknown]
  - Anaemia [Unknown]
  - Duodenal perforation [Unknown]
  - Early satiety [Unknown]
  - Haemoglobin decreased [Unknown]
  - Helicobacter test [Unknown]
  - Melaena [Unknown]
  - Nausea [Unknown]
  - Upper gastrointestinal haemorrhage [Unknown]
  - Weight decreased [Unknown]
  - Overdose [Unknown]
